FAERS Safety Report 10793848 (Version 1)
Quarter: 2015Q1

REPORT INFORMATION
  Report Type: Report from Study
  Country: NL (occurrence: NL)
  Receive Date: 20150213
  Receipt Date: 20150213
  Transmission Date: 20150721
  Serious: Yes (Other)
  Sender: FDA-Public Use
  Company Number: NL-BAXTER-2015BAX007472

PATIENT

DRUGS (4)
  1. CIPROFLOXACIN REDIBAG 2 MG/ML, OPLOSSING VOOR INFUSIE [Suspect]
     Active Substance: CIPROFLOXACIN
     Indication: ESCHERICHIA BACTERAEMIA
     Route: 042
  2. CIPROFLOXACIN REDIBAG 2 MG/ML, OPLOSSING VOOR INFUSIE [Suspect]
     Active Substance: CIPROFLOXACIN
     Indication: DRUG RESISTANCE
  3. FLUDARABINE [Suspect]
     Active Substance: FLUDARABINE PHOSPHATE
     Indication: BONE MARROW CONDITIONING REGIMEN
     Route: 042
  4. ENDOXAN I.V., POEDER VOOR OPLOSSING VOOR INJECTIE 200, 500, 1000 MG [Suspect]
     Active Substance: CYCLOPHOSPHAMIDE
     Indication: BONE MARROW CONDITIONING REGIMEN
     Route: 042

REACTIONS (2)
  - Drug resistance [Unknown]
  - Escherichia bacteraemia [Recovering/Resolving]
